FAERS Safety Report 8520661-5 (Version None)
Quarter: 2012Q3

REPORT INFORMATION
  Report Type: 
  Country: None (occurrence: None)
  Receive Date: 20120705
  Receipt Date: 20120620
  Transmission Date: 20120928
  Serious: Yes (Disabling, Other)
  Sender: FDA-Public Use
  Company Number: 2012SP012576

PATIENT
  Sex: Male

DRUGS (2)
  1. VICTRELIS [Suspect]
     Indication: PRODUCT USED FOR UNKNOWN INDICATION
     Dates: start: 20120326
  2. PEGATRON (PEGYLATED INTERFERON ALFA-2B W/RIBAVIRIN) [Suspect]
     Indication: HEPATITIS C
     Dates: start: 20120115

REACTIONS (14)
  - INFLUENZA LIKE ILLNESS [None]
  - COGNITIVE DISORDER [None]
  - FEELING ABNORMAL [None]
  - FATIGUE [None]
  - NON-HODGKIN'S LYMPHOMA [None]
  - AFFECTIVE DISORDER [None]
  - LOSS OF CONSCIOUSNESS [None]
  - IMPAIRED WORK ABILITY [None]
  - IMPAIRED DRIVING ABILITY [None]
  - DISORIENTATION [None]
  - FEEDING DISORDER [None]
  - DYSPNOEA [None]
  - DISTURBANCE IN ATTENTION [None]
  - NEOPLASM PROGRESSION [None]
